FAERS Safety Report 5850974-7 (Version None)
Quarter: 2008Q3

REPORT INFORMATION
  Report Type: 
  Country: None (occurrence: None)
  Receive Date: 20080818
  Receipt Date: 20080806
  Transmission Date: 20090109
  Serious: Yes (Hospitalization, Other)
  Sender: FDA-Public Use
  Company Number: A-CH2008-21175

PATIENT
  Age: 56 Year
  Sex: Male
  Weight: 42 kg

DRUGS (3)
  1. TRACLEER [Suspect]
     Indication: PORTOPULMONARY HYPERTENSION
     Dosage: 62.5 MG, BID, ORAL
     Route: 048
     Dates: start: 20080610, end: 20080627
  2. SILDENAFIL CITRATE [Concomitant]
  3. PREDNISONE [Concomitant]

REACTIONS (11)
  - CREPITATIONS [None]
  - DYSPNOEA [None]
  - FLUID RETENTION [None]
  - HYPOXIA [None]
  - LUNG CONSOLIDATION [None]
  - LUNG INFILTRATION [None]
  - NOSOCOMIAL INFECTION [None]
  - PNEUMONIA [None]
  - PULMONARY OEDEMA [None]
  - PYREXIA [None]
  - RESPIRATORY FAILURE [None]
